FAERS Safety Report 22184749 (Version 1)
Quarter: 2023Q2

REPORT INFORMATION
  Report Type: Spontaneous
  Country: US (occurrence: US)
  Receive Date: 20230407
  Receipt Date: 20230407
  Transmission Date: 20230721
  Serious: No
  Sender: FDA-Public Use
  Company Number: US-Melinta Therapeutics, LLC-US-MLNT-23-00004

PATIENT
  Age: 72 Year
  Sex: Female

DRUGS (5)
  1. KIMYRSA [Suspect]
     Active Substance: ORITAVANCIN DIPHOSPHATE
     Indication: Splenic abscess
     Dosage: 1200MG
     Route: 041
     Dates: start: 20221019, end: 20221019
  2. KIMYRSA [Suspect]
     Active Substance: ORITAVANCIN DIPHOSPHATE
     Dosage: INFUSION WAS STOPPED. PLANNED DOSE AND DURATION OF INFUSION WAS 1200MG 60 MIN.
     Route: 041
     Dates: start: 20221102, end: 20221102
  3. BENADRYL [Concomitant]
     Active Substance: DIPHENHYDRAMINE HYDROCHLORIDE
     Indication: Premedication
     Dosage: 25 MG BENADRYL ORALLY AT LEAST 30 MINS PRIOR TO INFUSION.
     Route: 048
     Dates: start: 20221019, end: 20221019
  4. BENADRYL [Concomitant]
     Active Substance: DIPHENHYDRAMINE HYDROCHLORIDE
     Dosage: 25 MG BENADRYL ORALLY AT LEAST 30 MINS PRIOR TO INFUSION.
     Route: 048
     Dates: start: 20221102, end: 20221102
  5. BENADRYL [Concomitant]
     Active Substance: DIPHENHYDRAMINE HYDROCHLORIDE
     Dosage: ANOTHER 25 MG BENADRYL ORALLY AFTER STOPPING THE INFUSION.
     Route: 048
     Dates: start: 20221102, end: 20221102

REACTIONS (6)
  - Hyperhidrosis [Recovered/Resolved]
  - Cold sweat [Recovered/Resolved]
  - Infusion related reaction [Recovered/Resolved]
  - Back pain [Recovered/Resolved]
  - Off label use [Recovered/Resolved]
  - Multiple use of single-use product [Recovered/Resolved]

NARRATIVE: CASE EVENT DATE: 20221019
